FAERS Safety Report 20565274 (Version 1)
Quarter: 2022Q1

REPORT INFORMATION
  Report Type: Spontaneous
  Country: US (occurrence: US)
  Receive Date: 20220308
  Receipt Date: 20220308
  Transmission Date: 20220424
  Serious: No
  Sender: FDA-Public Use
  Company Number: US-ALLERGAN-2139240US

PATIENT
  Sex: Female

DRUGS (3)
  1. ESTRADIOL [Suspect]
     Active Substance: ESTRADIOL
     Indication: Vulvovaginal dryness
     Dosage: UNK UNK, BI-WEEKLY
     Route: 067
     Dates: start: 2020, end: 202110
  2. RESTASIS [Concomitant]
     Active Substance: CYCLOSPORINE
     Indication: Dry eye
     Dosage: UNK, BID
     Route: 047
  3. IMVEXXY [Concomitant]
     Active Substance: ESTRADIOL

REACTIONS (4)
  - Vulvovaginal injury [Recovered/Resolved]
  - Vulvovaginal erythema [Recovered/Resolved]
  - Hypersensitivity [Recovered/Resolved]
  - Vulvovaginal pruritus [Recovered/Resolved]
